FAERS Safety Report 9928409 (Version 1)
Quarter: 2014Q1

REPORT INFORMATION
  Report Type: Spontaneous
  Country: US (occurrence: US)
  Receive Date: 20140227
  Receipt Date: 20140227
  Transmission Date: 20141002
  Serious: Yes (Other)
  Sender: FDA-Public Use
  Company Number: US-PFIZER INC-2014054425

PATIENT
  Age: 70 Year
  Sex: Female
  Weight: 58.5 kg

DRUGS (1)
  1. ZYVOX [Suspect]
     Indication: PNEUMONIA
     Dosage: 600 MG, 2X/DAY
     Route: 042
     Dates: start: 20140112, end: 20140114

REACTIONS (2)
  - Staphylococcal infection [Unknown]
  - Drug ineffective [Unknown]
